FAERS Safety Report 4929433-1 (Version None)
Quarter: 2006Q1

REPORT INFORMATION
  Report Type: 
  Country: None (occurrence: None)
  Receive Date: 20060224
  Receipt Date: 20060211
  Transmission Date: 20060701
  Serious: Yes (Hospitalization, Other)
  Sender: FDA-Public Use
  Company Number: 2006012277

PATIENT
  Age: 57 Year
  Sex: Male
  Weight: 78 kg

DRUGS (7)
  1. SUTENT [Suspect]
     Indication: RENAL CELL CARCINOMA STAGE UNSPECIFIED
     Dosage: 50 MG (50 MG, 1 IN 1 D), ORAL
     Route: 048
     Dates: start: 20051008, end: 20060104
  2. CHLORPROMAZINE [Concomitant]
  3. MORPHINE [Concomitant]
  4. ORNITHINE OXOGLURATE (ORNITHINE OXOGLURATE) [Concomitant]
  5. ALL OTHER THERAPEUTIC PRODUCTS (ALL OTHER THERAPEUTIC PRODUCTS) [Concomitant]
  6. SODIUM POLYSTYRENE SULFONATE (SODIUM POLYSTYRENE SULFONATE) [Concomitant]
  7. ACETAMINOPHEN [Concomitant]

REACTIONS (8)
  - ANAEMIA [None]
  - ASCITES [None]
  - ASTHENIA [None]
  - HEPATOMEGALY [None]
  - HYPERCALCAEMIA [None]
  - HYPOALBUMINAEMIA [None]
  - HYPONATRAEMIA [None]
  - METASTASES TO LIVER [None]
